FAERS Safety Report 6732711-7 (Version None)
Quarter: 2010Q2

REPORT INFORMATION
  Report Type: 
  Country: None (occurrence: None)
  Receive Date: 20100514
  Receipt Date: 20100428
  Transmission Date: 20101027
  Serious: Yes (Hospitalization)
  Sender: FDA-Public Use
  Company Number: DE-1181834

PATIENT
  Age: 90 Year
  Sex: Male

DRUGS (1)
  1. CYCLOPENTOLATE HCL [Suspect]
     Dosage: OPHTHALMIC
     Route: 047

REACTIONS (7)
  - AMNESIA [None]
  - DISORIENTATION [None]
  - DRUG TOXICITY [None]
  - GAIT DISTURBANCE [None]
  - HEMIANOPIA [None]
  - HEMIPARESIS [None]
  - SPEECH DISORDER [None]
